FAERS Safety Report 25883756 (Version 1)
Quarter: 2025Q4

REPORT INFORMATION
  Report Type: Spontaneous
  Country: GB (occurrence: GB)
  Receive Date: 20251006
  Receipt Date: 20251006
  Transmission Date: 20260117
  Serious: Yes (Hospitalization)
  Sender: MYLAN
  Company Number: GB-MYLANLABS-2024M1045417

PATIENT
  Sex: Male

DRUGS (2)
  1. CLOZARIL [Suspect]
     Active Substance: CLOZAPINE
     Indication: Schizophrenia
     Dosage: 25 MILLIGRAM, AM (25 MG ON THE MORNING)
     Dates: start: 20010701, end: 20250926
  2. CLOZARIL [Suspect]
     Active Substance: CLOZAPINE
     Dosage: 25 MILLIGRAM, AM (25 MG ON THE MORNING, BEFORE THE 48 HOUR MARK)
     Dates: start: 20250928

REACTIONS (4)
  - Intestinal obstruction [Recovered/Resolved]
  - Differential white blood cell count abnormal [Unknown]
  - Anaemia [Unknown]
  - Therapy interrupted [Unknown]
